FAERS Safety Report 8034401-X (Version None)
Quarter: 2012Q1

REPORT INFORMATION
  Report Type: 
  Country: None (occurrence: None)
  Receive Date: 20120110
  Receipt Date: 20120105
  Transmission Date: 20120608
  Serious: Yes (Other)
  Sender: FDA-Public Use
  Company Number: US-ELI_LILLY_AND_COMPANY-US201110007311

PATIENT
  Sex: Female

DRUGS (3)
  1. HUMALOG [Suspect]
     Dosage: 3 U, EACH EVENING
     Dates: start: 20080101
  2. HUMALOG [Suspect]
     Indication: DIABETES MELLITUS
     Dosage: 2 U, EACH MORNING
     Dates: start: 20080101
  3. HUMALOG [Suspect]
     Dosage: 4 U, OTHER
     Dates: start: 20080101

REACTIONS (5)
  - BLOOD GLUCOSE INCREASED [None]
  - DIABETIC RETINOPATHY [None]
  - BLOOD GLUCOSE DECREASED [None]
  - BLOOD GLUCOSE FLUCTUATION [None]
  - BLINDNESS [None]
